FAERS Safety Report 4274287-2 (Version None)
Quarter: 2004Q1

REPORT INFORMATION
  Report Type: 
  Country: None (occurrence: None)
  Receive Date: 20040115
  Receipt Date: 20040107
  Transmission Date: 20041129
  Serious: Yes (Other)
  Sender: FDA-Public Use
  Company Number: HQWYE219709JAN04

PATIENT
  Age: 4 Year
  Sex: Female

DRUGS (1)
  1. CHILDREN'S ADVIL [Suspect]
     Indication: PAIN
     Dosage: 1 TEASPOON DAILY, ORAL
     Route: 048
     Dates: start: 20040103, end: 20040107

REACTIONS (4)
  - DYSPNOEA [None]
  - JOINT SWELLING [None]
  - THERMAL BURN [None]
  - URTICARIA [None]
